FAERS Safety Report 6987604-7 (Version None)
Quarter: 2010Q3

REPORT INFORMATION
  Report Type: 
  Country: None (occurrence: None)
  Receive Date: 20100827
  Receipt Date: 20090909
  Transmission Date: 20110219
  Serious: Yes (Hospitalization)
  Sender: FDA-Public Use
  Company Number: KADN20090129

PATIENT
  Age: 50 Year
  Sex: Female
  Weight: 81.6475 kg

DRUGS (6)
  1. KADIAN [Suspect]
     Indication: PAIN
     Dosage: 30 MG, 1 IN 12 HR, PER ORAL
     Route: 048
     Dates: start: 19990101, end: 20090803
  2. EFFEXOR XR [Suspect]
     Indication: PRODUCT USED FOR UNKNOWN INDICATION
     Dosage: 150 MG, 1 IN 24 HR, PER ORAL
     Route: 048
  3. WELLBUTRIN SR [Suspect]
     Indication: PRODUCT USED FOR UNKNOWN INDICATION
     Dosage: 150 MG, 1 IN 1 2 HR, PER ORAL
     Route: 048
  4. HALOPERIDOL [Suspect]
     Indication: PRODUCT USED FOR UNKNOWN INDICATION
     Dosage: 15 MG, QHS, PER ORAL
     Route: 048
  5. BACLOFEN [Suspect]
     Indication: PAIN
     Dosage: 10 MG, 1 IN 4 HR, PER ORAL
     Route: 048
  6. NORCO [Suspect]
     Indication: PAIN
     Dosage: 1-2 TABS Q4H PRN, PER ORAL
     Route: 048

REACTIONS (2)
  - PRODUCT FORMULATION ISSUE [None]
  - RESPIRATORY DEPRESSION [None]
